FAERS Safety Report 16758869 (Version 1)
Quarter: 2019Q3

REPORT INFORMATION
  Report Type: Report from Study
  Country: US (occurrence: US)
  Receive Date: 20190830
  Receipt Date: 20190830
  Transmission Date: 20191005
  Serious: Yes (Other)
  Sender: FDA-Public Use
  Company Number: US-JNJFOC-20190836764

PATIENT
  Sex: Female

DRUGS (1)
  1. IMBRUVICA [Suspect]
     Active Substance: IBRUTINIB
     Indication: WALDENSTROM^S MACROGLOBULINAEMIA
     Dosage: 420 MG, QD
     Route: 048
     Dates: start: 20160527

REACTIONS (8)
  - Surgery [Unknown]
  - Tremor [Unknown]
  - Chills [Unknown]
  - Pain [Unknown]
  - Contusion [Unknown]
  - Vomiting [Unknown]
  - Diarrhoea [Unknown]
  - Dyskinesia [Unknown]
